FAERS Safety Report 4681435-9 (Version None)
Quarter: 2005Q2

REPORT INFORMATION
  Report Type: 
  Country: None (occurrence: None)
  Receive Date: 20050601
  Receipt Date: 20050517
  Transmission Date: 20051028
  Serious: Yes (Other)
  Sender: FDA-Public Use
  Company Number: USA050598342

PATIENT
  Age: 59 Year
  Sex: Female

DRUGS (3)
  1. FORTEO [Suspect]
     Indication: BONE DENSITY DECREASED
     Dates: start: 20050507
  2. PREMARIN [Concomitant]
  3. VITAMINS [Concomitant]

REACTIONS (15)
  - ABASIA [None]
  - BLOOD ALKALINE PHOSPHATASE INCREASED [None]
  - BLOOD GLUCOSE ABNORMAL [None]
  - BRONCHITIS [None]
  - CARBON DIOXIDE DECREASED [None]
  - CONVULSION [None]
  - DRUG HYPERSENSITIVITY [None]
  - DYSSTASIA [None]
  - GRIP STRENGTH DECREASED [None]
  - INFLUENZA LIKE ILLNESS [None]
  - MUSCLE SPASMS [None]
  - PAIN [None]
  - PHARMACEUTICAL PRODUCT COMPLAINT [None]
  - POSTURE ABNORMAL [None]
  - TREMOR [None]
